FAERS Safety Report 23467346 (Version 1)
Quarter: 2024Q1

REPORT INFORMATION
  Report Type: Spontaneous
  Country: ES (occurrence: ES)
  Receive Date: 20240201
  Receipt Date: 20240201
  Transmission Date: 20240410
  Serious: Yes (Other)
  Sender: FDA-Public Use
  Company Number: ES-JNJFOC-20231018026

PATIENT
  Age: 51 Year
  Sex: Male

DRUGS (5)
  1. BORTEZOMIB [Suspect]
     Active Substance: BORTEZOMIB
     Indication: Waldenstrom^s macroglobulinaemia
     Dosage: UNK
     Route: 065
  2. CYCLOPHOSPHAMIDE [Suspect]
     Active Substance: CYCLOPHOSPHAMIDE
     Indication: Waldenstrom^s macroglobulinaemia
     Route: 065
  3. DEXAMETHASONE [Suspect]
     Active Substance: DEXAMETHASONE
     Indication: Waldenstrom^s macroglobulinaemia
     Dosage: UNK
     Route: 065
  4. IMBRUVICA [Suspect]
     Active Substance: IBRUTINIB
     Indication: Waldenstrom^s macroglobulinaemia
     Dosage: UNK
     Route: 048
  5. RITUXIMAB [Suspect]
     Active Substance: RITUXIMAB
     Indication: Waldenstrom^s macroglobulinaemia
     Route: 065

REACTIONS (3)
  - Giardiasis [Unknown]
  - Malignant syphilis [Unknown]
  - Herpes simplex reactivation [Unknown]
